FAERS Safety Report 19125450 (Version 1)
Quarter: 2021Q2

REPORT INFORMATION
  Report Type: Spontaneous
  Country: IT (occurrence: IT)
  Receive Date: 20210413
  Receipt Date: 20210413
  Transmission Date: 20210717
  Serious: Yes (Hospitalization, Other)
  Sender: FDA-Public Use
  Company Number: IT-IPCA LABORATORIES LIMITED-IPC-2021-IT-000856

PATIENT

DRUGS (6)
  1. TRAZODONE [Interacting]
     Active Substance: TRAZODONE HYDROCHLORIDE
     Indication: PRODUCT USED FOR UNKNOWN INDICATION
     Dosage: 60 MILLIGRAM PER MILLILITRE, (4 DROPS PER DAY)
     Route: 065
  2. WARFARIN SODIUM. [Suspect]
     Active Substance: WARFARIN SODIUM
     Indication: MITRAL VALVE DISEASE
     Dosage: 40 MILLIGRAM, Q.W FOR YEARS
     Route: 065
  3. WARFARIN SODIUM. [Interacting]
     Active Substance: WARFARIN SODIUM
     Dosage: 105 MILLIGRAM, Q.W
     Route: 065
  4. WARFARIN SODIUM. [Interacting]
     Active Substance: WARFARIN SODIUM
     Dosage: 85 MILLIGRAM, Q.W
     Route: 065
  5. PHENOBARBITAL. [Interacting]
     Active Substance: PHENOBARBITAL
     Indication: PRODUCT USED FOR UNKNOWN INDICATION
     Dosage: 100 MILLIGRAM, QD
     Route: 065
  6. WARFARIN SODIUM. [Interacting]
     Active Substance: WARFARIN SODIUM
     Indication: ATRIAL FIBRILLATION
     Dosage: 67 MILLIGRAM, Q.W
     Route: 065

REACTIONS (6)
  - Cholecystitis [Unknown]
  - Drug resistance [Unknown]
  - Drug ineffective [Unknown]
  - Cognitive disorder [Unknown]
  - Drug interaction [Unknown]
  - Epilepsy [Unknown]
